FAERS Safety Report 5752006-8 (Version None)
Quarter: 2008Q2

REPORT INFORMATION
  Report Type: 
  Country: None (occurrence: None)
  Receive Date: 20080527
  Receipt Date: 20080415
  Transmission Date: 20081010
  Serious: Yes (Hospitalization)
  Sender: FDA-Public Use
  Company Number: 002#8#2008-00421

PATIENT
  Age: 35 Day
  Sex: Male

DRUGS (1)
  1. CALCIFEROL-DROPS (ERGOCALCIFEROL) [Suspect]
     Indication: VITAMIN D DEFICIENCY
     Dosage: 600000IU, ORAL
     Route: 048

REACTIONS (11)
  - DEHYDRATION [None]
  - DRUG TOXICITY [None]
  - FEEDING DISORDER OF INFANCY OR EARLY CHILDHOOD [None]
  - HYPERCALCAEMIA [None]
  - IRRITABILITY [None]
  - LETHARGY [None]
  - MUSCULAR WEAKNESS [None]
  - NEPHROCALCINOSIS [None]
  - RESTLESSNESS [None]
  - VITAMIN D ABNORMAL [None]
  - VITAMIN D INCREASED [None]
